FAERS Safety Report 25450475 (Version 1)
Quarter: 2025Q2

REPORT INFORMATION
  Report Type: Spontaneous
  Country: US (occurrence: None)
  Receive Date: 20250617
  Receipt Date: 20250617
  Transmission Date: 20250717
  Serious: Yes (Death)
  Sender: FDA-CTU
  Company Number: None

PATIENT
  Age: 73 Year
  Sex: Female

DRUGS (14)
  1. BIMZELX [Suspect]
     Active Substance: BIMEKIZUMAB-BKZX
     Indication: Psoriasis
     Route: 058
     Dates: start: 20241231, end: 20250605
  2. CLARITIN [Concomitant]
     Active Substance: LORATADINE
  3. ALBUTEROL SULFATE [Concomitant]
     Active Substance: ALBUTEROL SULFATE
  4. ATORVASTATIN [Concomitant]
     Active Substance: ATORVASTATIN
  5. BACLOFEN [Concomitant]
     Active Substance: BACLOFEN
  6. BUPROPION [Concomitant]
     Active Substance: BUPROPION
  7. FLONASE 50MCG NAS SPRAY [Concomitant]
  8. HYDROCODONE/ACETAMINOPHEN 5-325mg [Concomitant]
  9. IMITREX 25MG [Concomitant]
  10. INSULIN LISPRO [Concomitant]
     Active Substance: INSULIN LISPRO
  11. LEVEMIR FLEX TOUCH PEN [Concomitant]
  12. LOPERAMIDE [Concomitant]
     Active Substance: LOPERAMIDE
  13. NYSTATIN [Concomitant]
     Active Substance: NYSTATIN
  14. OMEPRAZOLE [Concomitant]
     Active Substance: OMEPRAZOLE

REACTIONS (2)
  - Lung neoplasm malignant [None]
  - Adverse event [None]

NARRATIVE: CASE EVENT DATE: 20250615
